FAERS Safety Report 7875293-9 (Version None)
Quarter: 2011Q4

REPORT INFORMATION
  Report Type: 
  Country: None (occurrence: None)
  Receive Date: 20111021
  Receipt Date: 20110222
  Transmission Date: 20120403
  Serious: Yes (Other)
  Sender: FDA-Public Use
  Company Number: 2011SP008406

PATIENT
  Age: 60 Year
  Sex: Female

DRUGS (3)
  1. DECADRON [Concomitant]
  2. RADIATION [Concomitant]
  3. TEMODAR [Suspect]
     Indication: GLIOBLASTOMA
     Dosage: 120 MG;QD;PO
     Route: 048
     Dates: start: 20110120, end: 20110209

REACTIONS (5)
  - ALANINE AMINOTRANSFERASE INCREASED [None]
  - BLOOD BILIRUBIN INCREASED [None]
  - PYREXIA [None]
  - CHILLS [None]
  - ASPARTATE AMINOTRANSFERASE INCREASED [None]
